FAERS Safety Report 6231565-5 (Version None)
Quarter: 2009Q2

REPORT INFORMATION
  Report Type: 
  Country: None (occurrence: None)
  Receive Date: 20090616
  Receipt Date: 20090604
  Transmission Date: 20091009
  Serious: Yes (Other)
  Sender: FDA-Public Use
  Company Number: CH-AMGEN-US334406

PATIENT
  Age: 36 Year
  Sex: Female

DRUGS (1)
  1. ENBREL [Suspect]
     Indication: ANKYLOSING SPONDYLITIS
     Dosage: DOSE AND FREQUENCY UNKNOWN
     Route: 065
     Dates: start: 20080701

REACTIONS (2)
  - DYSAESTHESIA [None]
  - PARAESTHESIA [None]
